FAERS Safety Report 9645800 (Version 5)
Quarter: 2013Q4

REPORT INFORMATION
  Report Type: Spontaneous
  Country: JP (occurrence: JP)
  Receive Date: 20131025
  Receipt Date: 20131127
  Transmission Date: 20140711
  Serious: Yes (Hospitalization, Other)
  Sender: FDA-Public Use
  Company Number: JP-PFIZER INC-2013243386

PATIENT
  Age: 60 Year
  Sex: Male

DRUGS (2)
  1. INLYTA [Suspect]
     Indication: METASTATIC RENAL CELL CARCINOMA
     Dosage: 5 MG, 1X/DAY (IN THE MORNING)
     Route: 048
     Dates: start: 201308
  2. INLYTA [Suspect]
     Dosage: 3 MG, 2X/DAY
     Route: 048

REACTIONS (5)
  - Pyrexia [Recovered/Resolved]
  - Anaemia [Not Recovered/Not Resolved]
  - Hypertension [Recovered/Resolved]
  - C-reactive protein increased [Recovered/Resolved]
  - Off label use [Unknown]
